FAERS Safety Report 15682102 (Version 1)
Quarter: 2018Q4

REPORT INFORMATION
  Report Type: Spontaneous
  Country: US (occurrence: US)
  Receive Date: 20181203
  Receipt Date: 20181203
  Transmission Date: 20190205
  Serious: Yes (Other)
  Sender: FDA-Public Use
  Company Number: US-TEVA-008356

PATIENT
  Age: 66 Year
  Sex: Male
  Weight: 80.73 kg

DRUGS (6)
  1. WARFARIN SODIUM TABLET 1MG, 2MG, 2.5MG, 3MG, 4MG, 5MG,6MG, 7.5MG, 10MG [Suspect]
     Active Substance: WARFARIN SODIUM
     Indication: ATRIAL FIBRILLATION
     Dosage: 1.25 MILLIGRAM DAILY; 1.25 QDAY
     Route: 048
     Dates: start: 20060701
  2. AMIODARONE [Suspect]
     Active Substance: AMIODARONE
     Indication: ATRIAL FIBRILLATION
  3. WARFARIN SODIUM TABLET 1MG, 2MG, 2.5MG, 3MG, 4MG, 5MG,6MG, 7.5MG, 10MG [Suspect]
     Active Substance: WARFARIN SODIUM
     Indication: ATRIAL FLUTTER
     Dosage: .5  DAILY; 0.5 TABLET, QD
     Route: 048
     Dates: start: 20060701
  4. DILTIAZEM. [Suspect]
     Active Substance: DILTIAZEM
     Indication: ATRIAL FIBRILLATION
  5. AMIODARONE [Suspect]
     Active Substance: AMIODARONE
     Indication: ATRIAL FLUTTER
     Dosage: 200 MILLIGRAM DAILY; 200 MG, QD
     Route: 048
     Dates: start: 20060701
  6. DILTIAZEM. [Suspect]
     Active Substance: DILTIAZEM
     Indication: ATRIAL FLUTTER
     Dosage: 180 MILLIGRAM DAILY; 180 MG, QD
     Route: 048
     Dates: start: 20050701

REACTIONS (7)
  - Haemoglobin decreased [Not Recovered/Not Resolved]
  - Diverticulum [Recovering/Resolving]
  - Large intestine polyp [Recovered/Resolved]
  - Iron deficiency anaemia [Not Recovered/Not Resolved]
  - Dysplasia [Unknown]
  - Gastrointestinal haemorrhage [Unknown]
  - Colon adenoma [Unknown]

NARRATIVE: CASE EVENT DATE: 20060717
